FAERS Safety Report 21122330 (Version 1)
Quarter: 2022Q3

REPORT INFORMATION
  Report Type: Spontaneous
  Country: US (occurrence: US)
  Receive Date: 20220723
  Receipt Date: 20220723
  Transmission Date: 20221027
  Serious: No
  Sender: FDA-Public Use
  Company Number: US-BRISTOL-MYERS SQUIBB COMPANY-2022-077240

PATIENT
  Age: 81 Year

DRUGS (1)
  1. REVLIMID [Suspect]
     Active Substance: LENALIDOMIDE
     Indication: Plasma cell myeloma
     Dosage: FREQ : ?15 MG, ONCE A DAY 14 DAYS OUT OF 21 DAY CYCLE?
     Route: 065

REACTIONS (1)
  - Intentional product use issue [Unknown]
